FAERS Safety Report 8836984 (Version 1)
Quarter: 2012Q4

REPORT INFORMATION
  Report Type: Spontaneous
  Country: US (occurrence: None)
  Receive Date: 20121010
  Receipt Date: 20121010
  Transmission Date: 20130627
  Serious: Yes (Hospitalization)
  Sender: FDA-Public Use
  Company Number: RLI2012-NIL0101

PATIENT
  Age: 23 Year
  Sex: Female
  Weight: 63 kg

DRUGS (2)
  1. NILOTINIB [Suspect]
     Route: 048
     Dates: start: 20120825
  2. TASIGNA [Suspect]
     Route: 048
     Dates: start: 20120908

REACTIONS (8)
  - Hepatic enzyme increased [None]
  - Headache [None]
  - Pyrexia [None]
  - Malaise [None]
  - Abdominal pain [None]
  - Night sweats [None]
  - Hepatitis [None]
  - Infectious mononucleosis [None]
